FAERS Safety Report 5371982-9 (Version None)
Quarter: 2007Q2

REPORT INFORMATION
  Report Type: 
  Country: None (occurrence: None)
  Receive Date: 20070625
  Receipt Date: 20070612
  Transmission Date: 20071010
  Serious: Yes (Hospitalization)
  Sender: FDA-Public Use
  Company Number: 2007JP002633

PATIENT
  Age: 51 Year
  Sex: Female
  Weight: 70.1 kg

DRUGS (16)
  1. TACROLIMUS [Suspect]
     Indication: RHEUMATOID ARTHRITIS
     Dosage: 3 MG, UNKNOWN/D, ORAL
     Route: 048
     Dates: start: 20061108, end: 20070530
  2. RHEUMATREX [Concomitant]
  3. FOLIAMIN (FOLIC ACID) TABLET [Concomitant]
  4. VOLTAREN (DICLOFENAC) CAPSULE [Concomitant]
  5. SOLON (SOFALCONE) CAPSULE [Concomitant]
  6. LIDOCAINE (LIDOCAINE) INJECTION 1% [Concomitant]
  7. KENACORT-A INJECTION [Concomitant]
  8. INTEBAN (INDOMETACIN) CREAM [Concomitant]
  9. RINDERON-VG (GENTAMICIN SULFATE) OINTMENT [Concomitant]
  10. ALLELOCK (OLOPATADINE HYDROCHLORIDE) [Concomitant]
  11. LIDOMEX (PREDNISOLONE VALEROACETATE) OINTMENT [Concomitant]
  12. PREDONINE (PREDNISOLONE) OINTMENT [Concomitant]
  13. METHYCOBAL (MECOBALAMIN) TABLET [Concomitant]
  14. SERENAL (OXAZOLAM) TABLET [Concomitant]
  15. DASEN (SERRAPEPTASE) TABLET [Concomitant]
  16. MOHRUS (KETOPROFEN) TAPE [Concomitant]

REACTIONS (5)
  - CELLULITIS [None]
  - HEPATIC FUNCTION ABNORMAL [None]
  - OEDEMA PERIPHERAL [None]
  - PAIN IN EXTREMITY [None]
  - THROMBOPHLEBITIS [None]
